FAERS Safety Report 6752156-3 (Version None)
Quarter: 2010Q2

REPORT INFORMATION
  Report Type: 
  Country: None (occurrence: None)
  Receive Date: 20100526
  Receipt Date: 20100407
  Transmission Date: 20101027
  Serious: No
  Sender: FDA-Public Use
  Company Number: 307045

PATIENT
  Sex: Male

DRUGS (8)
  1. VICTOZA [Suspect]
     Indication: INSULIN-REQUIRING TYPE 2 DIABETES MELLITUS
     Dosage: 1.8 MG, QD, SUBCUTANEOUS
     Route: 058
     Dates: start: 20100309
  2. METFORMIN HCL [Concomitant]
  3. ACTOS /01460201/ (PIOGLITAZONE) [Concomitant]
  4. LEVEMIR [Concomitant]
  5. ASPIRIN [Concomitant]
  6. LYRICA [Concomitant]
  7. DIOVAN [Concomitant]
  8. LOVASTATIN [Concomitant]

REACTIONS (1)
  - RASH [None]
